FAERS Safety Report 15653554 (Version 1)
Quarter: 2018Q4

REPORT INFORMATION
  Report Type: Spontaneous
  Country: NO (occurrence: NO)
  Receive Date: 20181124
  Receipt Date: 20181124
  Transmission Date: 20190205
  Serious: Yes (Life-Threatening, Other)
  Sender: FDA-Public Use
  Company Number: NO-ACCORD-092898

PATIENT
  Age: 18 Year
  Sex: Male

DRUGS (3)
  1. ETOPOSIDE. [Suspect]
     Active Substance: ETOPOSIDE
     Indication: METASTASES TO LYMPH NODES
     Dosage: HIGH-DOSE
  2. CARBOPLATIN. [Suspect]
     Active Substance: CARBOPLATIN
     Indication: METASTASES TO LYMPH NODES
     Dosage: HIGH-DOSE
  3. FILGRASTIM/GRANULOCYTE COLONY STIMULATING/LENOGRASTIM [Suspect]
     Active Substance: GRANULOCYTE COLONY-STIMULATING FACTOR NOS
     Indication: PRODUCT USED FOR UNKNOWN INDICATION

REACTIONS (4)
  - Pneumonitis [Recovering/Resolving]
  - Pulmonary toxicity [Recovering/Resolving]
  - Stenotrophomonas infection [Recovering/Resolving]
  - Off label use [Unknown]
